FAERS Safety Report 9561181 (Version 1)
Quarter: 2013Q3

REPORT INFORMATION
  Report Type: Spontaneous
  Country: US (occurrence: US)
  Receive Date: 20130927
  Receipt Date: 20130927
  Transmission Date: 20140515
  Serious: No
  Sender: FDA-Public Use
  Company Number: US-BAYER-2013-116846

PATIENT
  Age: 48 Year
  Sex: Female
  Weight: 86 kg

DRUGS (4)
  1. ESTRADIOL HEMIHYDRATE (PATCH) [Suspect]
     Dosage: 0.05 MG/D, OW
     Route: 061
     Dates: end: 201307
  2. NEXIUM [Concomitant]
     Indication: GASTROOESOPHAGEAL REFLUX DISEASE
     Dosage: 40 MG, QD
     Route: 048
     Dates: start: 1992
  3. PROGESTERONE [Concomitant]
     Indication: MENOPAUSE
     Dosage: 300 MG, QD
     Route: 048
     Dates: start: 2009
  4. LOSARTAN POTASSIUM [Concomitant]
     Dosage: 25 MG, QD
     Route: 048
     Dates: start: 2010

REACTIONS (5)
  - Acne [Recovered/Resolved]
  - Erythema [Recovered/Resolved]
  - Pruritus [Recovered/Resolved]
  - Pain [Recovered/Resolved]
  - Skin disorder [Recovered/Resolved]
